FAERS Safety Report 6647519-0 (Version None)
Quarter: 2010Q1

REPORT INFORMATION
  Report Type: 
  Country: None (occurrence: None)
  Receive Date: 20100323
  Receipt Date: 20100317
  Transmission Date: 20100710
  Serious: Yes (Life-Threatening, Hospitalization, Other)
  Sender: FDA-Public Use
  Company Number: DZ-MERCK-1003USA02660

PATIENT
  Age: 58 Year
  Sex: Female
  Weight: 60 kg

DRUGS (1)
  1. SINGULAIR [Suspect]
     Indication: ASTHMA
     Route: 048

REACTIONS (6)
  - CHOKING SENSATION [None]
  - FACE OEDEMA [None]
  - GENERALISED ERYTHEMA [None]
  - LIP OEDEMA [None]
  - PRURITUS [None]
  - RESPIRATORY DISORDER [None]
